FAERS Safety Report 13616148 (Version 1)
Quarter: 2017Q2

REPORT INFORMATION
  Report Type: Spontaneous
  Country: JP (occurrence: JP)
  Receive Date: 20170606
  Receipt Date: 20170606
  Transmission Date: 20170830
  Serious: Yes (Life-Threatening, Other)
  Sender: FDA-Public Use
  Company Number: JP-ACCORD-045237

PATIENT
  Age: 74 Year
  Sex: Male

DRUGS (3)
  1. EPIRUBICIN [Suspect]
     Active Substance: EPIRUBICIN
     Indication: EXTRAMAMMARY PAGET^S DISEASE
     Dosage: WEEKLY REGIMEN
  2. PACLITAXEL/PACLITAXEL LIPOSOME [Suspect]
     Active Substance: PACLITAXEL
     Indication: EXTRAMAMMARY PAGET^S DISEASE
     Dosage: WEEKLY REGIMEN
  3. CISPLATIN. [Suspect]
     Active Substance: CISPLATIN
     Indication: EXTRAMAMMARY PAGET^S DISEASE
     Dosage: WEEKLY REGIMEN

REACTIONS (8)
  - Haematotoxicity [Recovered/Resolved]
  - Fatigue [Recovered/Resolved]
  - Anaemia [Recovered/Resolved]
  - Alopecia [Unknown]
  - Leukopenia [Recovering/Resolving]
  - Nausea [Recovered/Resolved]
  - Thrombocytopenia [Recovered/Resolved]
  - Neutropenia [Recovering/Resolving]
